FAERS Safety Report 25299202 (Version 2)
Quarter: 2025Q2

REPORT INFORMATION
  Report Type: Spontaneous
  Country: US (occurrence: US)
  Receive Date: 20250512
  Receipt Date: 20250516
  Transmission Date: 20250717
  Serious: Yes (Hospitalization)
  Sender: ROCHE
  Company Number: US-ROCHE-10000277042

PATIENT
  Sex: Female

DRUGS (2)
  1. ACTEMRA [Suspect]
     Active Substance: TOCILIZUMAB
     Indication: Product used for unknown indication
     Route: 065
     Dates: start: 20250430
  2. ACTEMRA [Suspect]
     Active Substance: TOCILIZUMAB
     Route: 065

REACTIONS (5)
  - Malaise [Unknown]
  - Wrong technique in device usage process [Unknown]
  - Product complaint [Unknown]
  - Device malfunction [Unknown]
  - Thrombosis [Unknown]

NARRATIVE: CASE EVENT DATE: 20250430
